FAERS Safety Report 23426805 (Version 1)
Quarter: 2024Q1

REPORT INFORMATION
  Report Type: Spontaneous
  Country: FR (occurrence: FR)
  Receive Date: 20240122
  Receipt Date: 20240122
  Transmission Date: 20240410
  Serious: Yes (Hospitalization, Disabling, Other)
  Sender: FDA-Public Use
  Company Number: FR-AUROBINDO-AUR-APL-2023-060611

PATIENT
  Sex: Female

DRUGS (8)
  1. PROPOXYPHENE HYDROCHLORIDE [Suspect]
     Active Substance: PROPOXYPHENE HYDROCHLORIDE
     Indication: Musculoskeletal stiffness
     Dosage: UNK
     Route: 065
     Dates: start: 20061107, end: 200611
  2. PROPOXYPHENE HYDROCHLORIDE [Suspect]
     Active Substance: PROPOXYPHENE HYDROCHLORIDE
     Indication: Headache
  3. PREDNISOLONE [Suspect]
     Active Substance: PREDNISOLONE
     Indication: Musculoskeletal stiffness
     Dosage: UNK
     Route: 065
     Dates: start: 20061107, end: 200611
  4. PREDNISOLONE [Suspect]
     Active Substance: PREDNISOLONE
     Indication: Headache
  5. PENICILLIN [Suspect]
     Active Substance: PENICILLIN
     Indication: Headache
     Dosage: UNK
     Route: 065
     Dates: start: 20061107, end: 200611
  6. PENICILLIN [Suspect]
     Active Substance: PENICILLIN
     Indication: Musculoskeletal stiffness
  7. PREDNISOLONE [Suspect]
     Active Substance: PREDNISOLONE
     Indication: Musculoskeletal stiffness
     Dosage: 3 DOSAGE FORM, DAILY (60 MG)
     Route: 048
     Dates: start: 20061107, end: 200611
  8. PREDNISOLONE [Suspect]
     Active Substance: PREDNISOLONE
     Indication: Headache

REACTIONS (6)
  - Musculoskeletal stiffness [Recovered/Resolved with Sequelae]
  - Meningoencephalitis herpetic [Recovered/Resolved with Sequelae]
  - Cerebral haemorrhage [Recovered/Resolved with Sequelae]
  - Coma [Recovered/Resolved with Sequelae]
  - Headache [Recovered/Resolved with Sequelae]
  - Contraindicated product administered [Unknown]

NARRATIVE: CASE EVENT DATE: 20061101
